FAERS Safety Report 7002608-6 (Version None)
Quarter: 2010Q3

REPORT INFORMATION
  Report Type: 
  Country: None (occurrence: None)
  Receive Date: 20100920
  Receipt Date: 20100913
  Transmission Date: 20110219
  Serious: Yes (Hospitalization, Other)
  Sender: FDA-Public Use
  Company Number: PHHY2009CA16639

PATIENT
  Sex: Female

DRUGS (16)
  1. SANDOSTATIN LAR [Suspect]
     Indication: CARCINOID SYNDROME
     Dosage: 40 MG EVERY 4 WEEKS
     Route: 030
     Dates: start: 19900401
  2. SANDOSTATIN LAR [Suspect]
     Dosage: 50 MG EVERY 4 WEEKS
     Route: 030
     Dates: start: 20001106
  3. METFORMIN [Concomitant]
  4. METOPROLOL [Concomitant]
  5. LASIX [Concomitant]
  6. ZANTAC [Concomitant]
     Dosage: 75 MG
     Route: 048
  7. INSULIN [Concomitant]
  8. COZAAR [Concomitant]
     Dosage: 50 ML
  9. PARIET [Concomitant]
  10. FUROSEMIDE [Concomitant]
     Dosage: UNK/DAY
  11. POTASSIUM [Concomitant]
     Dosage: UNK/DAY
  12. ASPIRIN [Concomitant]
     Dosage: UNK/DAY
  13. LOSARTAN POTASSIUM [Concomitant]
     Dosage: UNK/DAY
  14. RABEPRAZOLE SODIUM [Concomitant]
     Dosage: UNK/DAY
  15. ACETAMINOPHEN [Concomitant]
     Dosage: UNK/DAY
  16. METHOTREXATE [Concomitant]
     Indication: PSORIATIC ARTHROPATHY

REACTIONS (15)
  - BALANCE DISORDER [None]
  - CARDIAC FAILURE [None]
  - CONCUSSION [None]
  - CORONARY ARTERY BYPASS [None]
  - CORONARY ARTERY DISEASE [None]
  - DIZZINESS [None]
  - DYSPNOEA [None]
  - FALL [None]
  - FATIGUE [None]
  - FLATULENCE [None]
  - FLUSHING [None]
  - HAEMOGLOBIN DECREASED [None]
  - INJURY [None]
  - OEDEMA PERIPHERAL [None]
  - SCIATICA [None]
